FAERS Safety Report 7989227-X (Version None)
Quarter: 2011Q4

REPORT INFORMATION
  Report Type: 
  Country: None (occurrence: None)
  Receive Date: 20111216
  Receipt Date: 20111216
  Transmission Date: 20120403
  Serious: Yes (Other)
  Sender: FDA-Public Use
  Company Number: None

PATIENT
  Sex: Female
  Weight: 64.8644 kg

DRUGS (1)
  1. NIFEDIPINE [Suspect]
     Indication: HYPERTENSION
     Dosage: 60 MG TAB XL GENERIC ONE TABLET A DAY
     Dates: start: 20111110

REACTIONS (12)
  - MALAISE [None]
  - SWELLING [None]
  - VISION BLURRED [None]
  - ASTHENIA [None]
  - OROPHARYNGEAL SWELLING [None]
  - DIZZINESS [None]
  - MUSCLE SPASMS [None]
  - HEADACHE [None]
  - DYSSTASIA [None]
  - FATIGUE [None]
  - HEART RATE IRREGULAR [None]
  - GINGIVAL SWELLING [None]
